FAERS Safety Report 5407088-X (Version None)
Quarter: 2007Q3

REPORT INFORMATION
  Report Type: 
  Country: None (occurrence: None)
  Receive Date: 20070802
  Receipt Date: 20070503
  Transmission Date: 20080115
  Serious: Yes (Other)
  Sender: FDA-Public Use
  Company Number: 001#1#2007-00315

PATIENT
  Age: 84 Year
  Sex: Male

DRUGS (8)
  1. NEUPRO-2MG/24H (ROTIGOTINE) [Suspect]
     Indication: DIABETIC NEUROPATHY
     Dosage: 2 MG/24H (2 MG/24H 1 IN 2 DAY(S)) TRANSDERMAL
     Route: 062
     Dates: start: 20070101, end: 20070502
  2. INSULIN-HUMAN (INSULIN HUMAN) [Concomitant]
  3. INSULIN-HUMAN (INSULIN INJECTION, ISOPHANE) [Concomitant]
  4. DIGITOXIN TAB [Concomitant]
  5. ISOPTIN [Concomitant]
  6. RAMIPRIL [Concomitant]
  7. HYDROCHLOROTHIAZIDE [Concomitant]
  8. THIOCTIC-ACID (THIOCTIC ACID) [Concomitant]

REACTIONS (1)
  - HEARING IMPAIRED [None]
